FAERS Safety Report 8776981 (Version 2)
Quarter: 2012Q4

REPORT INFORMATION
  Report Type: 
  Country: US (occurrence: US)
  Receive Date: 20120911
  Receipt Date: 20121204
  Transmission Date: 20130627
  Serious: Yes (Hospitalization)
  Sender: FDA-Public Use
  Company Number: US-BAYER-2012-094060

PATIENT
  Age: 44 Year
  Sex: Female
  Weight: 64.85 kg

DRUGS (5)
  1. YASMIN [Suspect]
     Indication: CONTRACEPTION
     Dosage: UNK
     Dates: start: 200312, end: 200608
  2. ALLEGRA [Concomitant]
     Indication: MULTIPLE ALLERGIES
     Dosage: Twice a day
     Dates: start: 2000
  3. PROZAC [Concomitant]
     Indication: EATING DISORDER
     Dosage: 10 mg, UNK
     Dates: start: 1990, end: 2008
  4. PROZAC [Concomitant]
     Indication: DEPRESSION
  5. ALBUTEROL [Concomitant]
     Indication: EXERCISE INDUCED ASTHMA
     Dosage: Daily
     Dates: start: 2000

REACTIONS (2)
  - Pulmonary embolism [None]
  - Dyspnoea [None]
